FAERS Safety Report 5577364-9 (Version None)
Quarter: 2007Q4

REPORT INFORMATION
  Report Type: 
  Country: None (occurrence: None)
  Receive Date: 20071228
  Receipt Date: 20071218
  Transmission Date: 20080405
  Serious: Yes (Hospitalization, Other)
  Sender: FDA-Public Use
  Company Number: US-PFIZER INC-2007106245

PATIENT
  Sex: Female

DRUGS (19)
  1. NEURONTIN [Suspect]
     Indication: SPINAL OSTEOARTHRITIS
     Dosage: DAILY DOSE:6400MG
  2. NEURONTIN [Suspect]
     Indication: FIBROMYALGIA
  3. FOSAMAX [Concomitant]
  4. ACETYLSALICYLIC ACID SRT [Concomitant]
  5. BACLOFEN [Concomitant]
     Dosage: DAILY DOSE:35MG
  6. CALCIUM CARBONATE [Concomitant]
  7. FLUOXETINE [Concomitant]
  8. HYDROCHLOROTHIAZIDE [Concomitant]
  9. HYDROCORTISONE [Concomitant]
  10. INSULIN GLARGINE [Concomitant]
  11. LISINOPRIL [Concomitant]
  12. VITAMIN CAP [Concomitant]
  13. NORTRIPTYLINE HCL [Concomitant]
  14. OMEPRAZOLE [Concomitant]
  15. ZOCOR [Concomitant]
  16. TOPAMAX [Concomitant]
  17. VITAMIN D [Concomitant]
  18. ROXICODONE [Concomitant]
  19. TYLENOL [Concomitant]

REACTIONS (4)
  - ADRENAL INSUFFICIENCY [None]
  - ASTHENIA [None]
  - MEDICATION ERROR [None]
  - MYOPATHY STEROID [None]
